FAERS Safety Report 21465866 (Version 1)
Quarter: 2022Q4

REPORT INFORMATION
  Report Type: Report from Study
  Country: US (occurrence: US)
  Receive Date: 20221017
  Receipt Date: 20221017
  Transmission Date: 20230113
  Serious: Yes (Other)
  Sender: FDA-Public Use
  Company Number: US-TEVA-2022-US-2816443

PATIENT
  Age: 39 Year
  Sex: Female

DRUGS (1)
  1. CLARAVIS [Suspect]
     Active Substance: ISOTRETINOIN
     Indication: Product used for unknown indication
     Route: 065
     Dates: start: 20220318, end: 20220809

REACTIONS (9)
  - Mood altered [Unknown]
  - Dry skin [Unknown]
  - Lip dry [Unknown]
  - Arthralgia [Unknown]
  - Pain [Unknown]
  - Pallor [Unknown]
  - Back pain [Unknown]
  - Lip discolouration [Unknown]
  - Road traffic accident [Unknown]

NARRATIVE: CASE EVENT DATE: 20220101
